FAERS Safety Report 16712591 (Version 2)
Quarter: 2019Q3

REPORT INFORMATION
  Report Type: Spontaneous
  Country: JP (occurrence: JP)
  Receive Date: 20190816
  Receipt Date: 20190826
  Transmission Date: 20191004
  Serious: Yes (Other)
  Sender: FDA-Public Use
  Company Number: PHJP2019JP007894

PATIENT
  Sex: Male
  Weight: 70 kg

DRUGS (1)
  1. EQUMET [Suspect]
     Active Substance: METFORMIN HYDROCHLORIDE\VILDAGLIPTIN
     Indication: TYPE 2 DIABETES MELLITUS
     Dosage: METFORMIN 250 MG/VILDAGLIPTIN 50 MG
     Route: 048
     Dates: start: 201805, end: 201811

REACTIONS (8)
  - Blister [Recovering/Resolving]
  - Pemphigoid [Recovering/Resolving]
  - Papule [Recovering/Resolving]
  - Cheilitis [Recovering/Resolving]
  - Erythema [Recovering/Resolving]
  - Penile ulceration [Recovering/Resolving]
  - Lymphocytic infiltration [Recovering/Resolving]
  - Inflammation [Recovering/Resolving]
